FAERS Safety Report 16092833 (Version 1)
Quarter: 2019Q1

REPORT INFORMATION
  Report Type: Spontaneous
  Country: US (occurrence: US)
  Receive Date: 20190320
  Receipt Date: 20190320
  Transmission Date: 20190418
  Serious: Yes (Other)
  Sender: FDA-Public Use
  Company Number: US-AMGEN-USASP2019040350

PATIENT
  Sex: Female

DRUGS (1)
  1. ENBREL [Suspect]
     Active Substance: ETANERCEPT
     Indication: PRODUCT USED FOR UNKNOWN INDICATION
     Dosage: 50 MILLIGRAM, QWK
     Route: 058

REACTIONS (7)
  - Maternal exposure during pregnancy [Unknown]
  - Drug hypersensitivity [Unknown]
  - Acne [Unknown]
  - Alopecia [Unknown]
  - Cardiac failure congestive [Unknown]
  - Weight increased [Unknown]
  - Peripheral swelling [Unknown]
